FAERS Safety Report 7395324 (Version 3)
Quarter: 2014Q1

REPORT INFORMATION
  Report Type: Spontaneous
  Country: US (occurrence: US)
  Receive Date: 20100521
  Receipt Date: 20140121
  Transmission Date: 20141002
  Serious: Yes (Other)
  Sender: FDA-Public Use
  Company Number: US-BAYER-201022783NA

PATIENT
  Age: 18 Year
  Sex: Female
  Weight: 113.38 kg

DRUGS (5)
  1. YAZ [Suspect]
     Indication: ORAL CONTRACEPTION
     Dosage: UNK
     Dates: start: 200708, end: 201003
  2. MACRODANTIN [Concomitant]
     Indication: KIDNEY INFECTION
     Dosage: UNK
     Dates: start: 2000
  3. MULTIVITAMINS [Concomitant]
  4. DOXYCYCLINE [Concomitant]
     Dosage: UNK
     Dates: start: 20090126
  5. ZETIA [Concomitant]

REACTIONS (6)
  - Cholelithiasis [Unknown]
  - Biliary colic [Unknown]
  - Post cholecystectomy syndrome [Unknown]
  - Gastrointestinal disorder [Unknown]
  - Gallbladder disorder [None]
  - Cholecystitis chronic [None]
